FAERS Safety Report 9932882 (Version 1)
Quarter: 2014Q1

REPORT INFORMATION
  Report Type: Spontaneous
  Country: US (occurrence: US)
  Receive Date: 20140228
  Receipt Date: 20140228
  Transmission Date: 20141002
  Serious: No
  Sender: FDA-Public Use
  Company Number: US-GLAXOSMITHKLINE-A1037017A

PATIENT
  Sex: Female

DRUGS (1)
  1. LAMICTAL [Suspect]
     Indication: PRODUCT USED FOR UNKNOWN INDICATION
     Dosage: 150MG UNKNOWN
     Route: 048
     Dates: start: 200904

REACTIONS (4)
  - Influenza [Unknown]
  - Malaise [Unknown]
  - Nasopharyngitis [Unknown]
  - Fatigue [Unknown]
